FAERS Safety Report 8362246-X (Version None)
Quarter: 2012Q2

REPORT INFORMATION
  Report Type: 
  Country: None (occurrence: None)
  Receive Date: 20120515
  Receipt Date: 20120508
  Transmission Date: 20120825
  Serious: Yes (Hospitalization, Other)
  Sender: FDA-Public Use
  Company Number: US-BAYER-201021244NA

PATIENT
  Age: 46 Year
  Sex: Female
  Weight: 81.633 kg

DRUGS (13)
  1. WARFARIN SODIUM [Concomitant]
     Indication: PULMONARY EMBOLISM
     Dosage: MAR-APR-MAY-2008
     Route: 065
     Dates: end: 20080801
  2. YAZ [Suspect]
     Route: 048
     Dates: start: 20071001, end: 20080201
  3. NAPROXEN [Concomitant]
     Indication: PLEURISY
     Dosage: 2009. PHARMACY RECORDS: JUN-2008
     Route: 065
  4. ACETAMINOPHEN W/ CODEINE [Concomitant]
     Dosage: ??-APR-2008
     Route: 065
  5. PROTONIX [Concomitant]
     Route: 065
  6. LORTAB [Concomitant]
     Route: 065
  7. MIRAPEX [Concomitant]
     Dosage: 0.25
     Route: 065
  8. REQUIP [Concomitant]
     Route: 065
  9. DARVOCET-N 50 [Concomitant]
     Route: 065
  10. CEPHALEXIN [Concomitant]
     Dosage: APR-2008
     Route: 065
  11. HYDROXYZINE HCL [Concomitant]
     Dosage: APR-JUN-JUL-2008
     Route: 065
  12. WARFARIN SODIUM [Concomitant]
     Route: 065
  13. REQUIP [Concomitant]
     Dosage: MAY-2008
     Route: 065

REACTIONS (14)
  - DYSPNOEA EXERTIONAL [None]
  - ANXIETY [None]
  - FATIGUE [None]
  - THROMBOSIS [None]
  - PALPITATIONS [None]
  - PLEURISY [None]
  - FEAR [None]
  - CHEST PAIN [None]
  - HEART RATE IRREGULAR [None]
  - ANHEDONIA [None]
  - QUALITY OF LIFE DECREASED [None]
  - MUSCULOSKELETAL CHEST PAIN [None]
  - EMOTIONAL DISTRESS [None]
  - PULMONARY EMBOLISM [None]
